FAERS Safety Report 9352078 (Version 3)
Quarter: 2013Q3

REPORT INFORMATION
  Report Type: Spontaneous
  Country: US (occurrence: US)
  Receive Date: 20130617
  Receipt Date: 20130725
  Transmission Date: 20140515
  Serious: Yes (Other)
  Sender: FDA-Public Use
  Company Number: US-BRISTOL-MYERS SQUIBB COMPANY-19008374

PATIENT
  Age: 47 Year
  Sex: Female

DRUGS (1)
  1. ORENCIA [Suspect]
     Indication: RHEUMATOID ARTHRITIS
     Dosage: EXP DATE:FEB-2015
     Route: 042
     Dates: start: 20121023, end: 20130417

REACTIONS (3)
  - Hip fracture [Unknown]
  - Sciatica [Unknown]
  - Osteoporosis [Unknown]
